FAERS Safety Report 14498764 (Version 1)
Quarter: 2018Q1

REPORT INFORMATION
  Report Type: Report from Study
  Country: US (occurrence: US)
  Receive Date: 20180207
  Receipt Date: 20180207
  Transmission Date: 20180509
  Serious: Yes (Hospitalization)
  Sender: FDA-Public Use
  Company Number: US-TAKEDA-2018TUS002967

PATIENT
  Age: 32 Year
  Sex: Male

DRUGS (1)
  1. VEDOLIZUMAB [Suspect]
     Active Substance: VEDOLIZUMAB
     Indication: COLITIS ULCERATIVE
     Dosage: UNK
     Route: 042
     Dates: start: 2015

REACTIONS (8)
  - Pneumonia [Unknown]
  - Liver function test increased [Unknown]
  - Abdominal pain lower [Unknown]
  - Leukopenia [Unknown]
  - Diarrhoea haemorrhagic [Unknown]
  - Nausea [Unknown]
  - Rectal haemorrhage [Unknown]
  - Drug dose omission [Unknown]

NARRATIVE: CASE EVENT DATE: 201709
